FAERS Safety Report 24350994 (Version 1)
Quarter: 2024Q3

REPORT INFORMATION
  Report Type: Spontaneous
  Country: US (occurrence: None)
  Receive Date: 20240920
  Receipt Date: 20240920
  Transmission Date: 20241016
  Serious: Yes (Hospitalization)
  Sender: Public
  Company Number: None

PATIENT
  Age: 70 Year
  Sex: Male
  Weight: 94.5 kg

DRUGS (1)
  1. TRELEGY ELLIPTA [Suspect]
     Active Substance: FLUTICASONE FUROATE\UMECLIDINIUM BROMIDE\VILANTEROL TRIFENATATE
     Indication: Chronic obstructive pulmonary disease
     Dosage: 30 PUFFS RESPIRATHORY (INHALATION)?
     Route: 055
     Dates: start: 20240715, end: 20240730

REACTIONS (7)
  - Headache [None]
  - Cough [None]
  - Sinusitis [None]
  - Pain [None]
  - Dyspnoea [None]
  - Fatigue [None]
  - Pneumonia [None]

NARRATIVE: CASE EVENT DATE: 20240730
